FAERS Safety Report 4642659-X (Version None)
Quarter: 2005Q2

REPORT INFORMATION
  Report Type: 
  Country: None (occurrence: None)
  Receive Date: 20050420
  Receipt Date: 20050408
  Transmission Date: 20051028
  Serious: Yes (Other)
  Sender: FDA-Public Use
  Company Number: 2005058697

PATIENT
  Age: 32 Year
  Sex: Male

DRUGS (1)
  1. HYDROCORTISONE [Suspect]
     Indication: SEBORRHOEIC DERMATITIS
     Dosage: 1% 3-4 TIMES PER DAY, TOPICAL
     Route: 061

REACTIONS (7)
  - CHORIORETINOPATHY [None]
  - CONDITION AGGRAVATED [None]
  - METAMORPHOPSIA [None]
  - RETINAL DETACHMENT [None]
  - RETINOPATHY [None]
  - SEBORRHOEIC DERMATITIS [None]
  - VISUAL ACUITY REDUCED [None]
